FAERS Safety Report 4638389-0 (Version None)
Quarter: 2005Q2

REPORT INFORMATION
  Report Type: 
  Country: None (occurrence: None)
  Receive Date: 20050415
  Receipt Date: 20050329
  Transmission Date: 20051028
  Serious: Yes (Hospitalization)
  Sender: FDA-Public Use
  Company Number: FR_050306022

PATIENT
  Age: 60 Year
  Sex: Male
  Weight: 53 kg

DRUGS (10)
  1. GEMZAR [Suspect]
     Indication: PANCREATIC CARCINOMA
     Dosage: 10000 MG/M2/ 1 OTHER
     Route: 050
     Dates: start: 20030605, end: 20030813
  2. OXALIPLATINE [Suspect]
     Indication: PANCREATIC CARCINOMA
     Dosage: 100 MG /M2/1 OTHER
     Route: 050
     Dates: start: 20030606, end: 20030814
  3. GEMZAR [Concomitant]
     Indication: PANCREATIC CARCINOMA
     Dosage: 100 MG/M2/1 WEEK
     Route: 042
     Dates: start: 20030908, end: 20031011
  4. RADIATION THERAPY [Suspect]
     Indication: PANCREATIC CARCINOMA
     Dosage: 2 GRAY DAY
     Dates: start: 20030908, end: 20031011
  5. FLUOROURACIL [Concomitant]
  6. CISPLATIN [Concomitant]
  7. LEDERFOLINE                    (CALCIUM FOLINATE) [Concomitant]
  8. NEXIUM [Concomitant]
  9. MORPHINE SULFATE [Concomitant]
  10. POTASSIUM CHLORIDE [Concomitant]

REACTIONS (6)
  - CATHETER RELATED COMPLICATION [None]
  - DEEP VEIN THROMBOSIS [None]
  - FIBRIN D DIMER INCREASED [None]
  - METASTASES TO LIVER [None]
  - PYREXIA [None]
  - VENOUS STENOSIS [None]
